FAERS Safety Report 8437218-7 (Version None)
Quarter: 2012Q2

REPORT INFORMATION
  Report Type: 
  Country: None (occurrence: None)
  Receive Date: 20120614
  Receipt Date: 20120330
  Transmission Date: 20120825
  Serious: No
  Sender: FDA-Public Use
  Company Number: US-AMGEN-USASP2011050258

PATIENT
  Sex: Female
  Weight: 57.143 kg

DRUGS (4)
  1. PROLIA [Suspect]
     Dosage: 60 MG, Q6MO
     Dates: start: 20111228
  2. PROLIA [Suspect]
     Indication: OSTEOPOROSIS POSTMENOPAUSAL
     Dosage: 60 MG, Q6MO
     Route: 058
     Dates: start: 20101116
  3. PROLIA [Suspect]
     Dosage: 60 MG, Q6MO
     Dates: start: 20110526
  4. CHOLESTEROL HEALTH [Concomitant]
     Dosage: UNK

REACTIONS (2)
  - MUSCLE DISORDER [None]
  - MUSCLE SPASMS [None]
